FAERS Safety Report 7236810-5 (Version None)
Quarter: 2011Q1

REPORT INFORMATION
  Report Type: 
  Country: None (occurrence: None)
  Receive Date: 20110120
  Receipt Date: 20110111
  Transmission Date: 20110831
  Serious: No
  Sender: FDA-Public Use
  Company Number: US-B.I. PHARMACEUTICALS,INC./RIDGEFIELD-2011-BP-01107BP

PATIENT
  Sex: Male

DRUGS (5)
  1. LISINOPRIL [Concomitant]
     Indication: HYPERTENSION
     Dates: start: 19910101
  2. SULAR [Concomitant]
     Indication: HYPERTENSION
     Dates: start: 20080101
  3. TOPROL-XL [Concomitant]
     Indication: HEART RATE INCREASED
     Dosage: 50 MG
     Dates: start: 19910101
  4. HYDROCHLOROTHIAZIDE [Concomitant]
     Indication: HYPERTENSION
     Dates: start: 19910101
  5. PRADAXA [Suspect]
     Indication: ATRIAL FIBRILLATION
     Dosage: 300 MG
     Route: 048
     Dates: start: 20101201

REACTIONS (3)
  - ARTHRALGIA [None]
  - BACK PAIN [None]
  - HAEMATOCHEZIA [None]
